FAERS Safety Report 9987937 (Version 1)
Quarter: 2014Q1

REPORT INFORMATION
  Report Type: Spontaneous
  Country: US (occurrence: US)
  Receive Date: 20140307
  Receipt Date: 20140307
  Transmission Date: 20141002
  Serious: Yes (Other)
  Sender: FDA-Public Use
  Company Number: US-GILEAD-2014-0095937

PATIENT
  Age: 39 Year
  Sex: Male

DRUGS (3)
  1. STRIBILD [Suspect]
     Indication: HIV INFECTION
     Dosage: 1 DF, QD
     Route: 048
     Dates: start: 201308, end: 20140225
  2. SALICYLIC ACID [Interacting]
     Indication: GASTRIC ULCER
     Dosage: 500 MG, TID
     Route: 065
  3. LEVOFLOXACIN [Concomitant]
     Indication: RASH
     Dosage: 750 MG, QD
     Route: 048

REACTIONS (3)
  - Gastric ulcer [Recovering/Resolving]
  - Myalgia [Recovering/Resolving]
  - Arthralgia [Recovering/Resolving]
